FAERS Safety Report 10278442 (Version 2)
Quarter: 2014Q3

REPORT INFORMATION
  Report Type: Spontaneous
  Country: US (occurrence: US)
  Receive Date: 20140704
  Receipt Date: 20140804
  Transmission Date: 20150326
  Serious: Yes (Hospitalization)
  Sender: FDA-Public Use
  Company Number: US-JNJFOC-20140615863

PATIENT
  Age: 21 Year
  Sex: Female

DRUGS (5)
  1. DIPHENHYDRAMINE [Concomitant]
     Active Substance: DIPHENHYDRAMINE
     Indication: PARKINSONISM
     Route: 030
  2. HALOPERIDOL. [Suspect]
     Active Substance: HALOPERIDOL
     Indication: PRODUCT USED FOR UNKNOWN INDICATION
     Dosage: 10 MG TWICE DAILY FOR 9 DAYS
     Route: 048
  3. LITHIUM [Suspect]
     Active Substance: LITHIUM CARBONATE
     Indication: PRODUCT USED FOR UNKNOWN INDICATION
     Dosage: 300 MG EVERY MORNING  AND 600 MG AT BEDTIME FOR 12 DAYS
     Route: 065
  4. HALOPERIDOL DECANOATE. [Suspect]
     Active Substance: HALOPERIDOL DECANOATE
     Indication: PRODUCT USED FOR UNKNOWN INDICATION
     Route: 065
  5. DIPHENHYDRAMINE [Concomitant]
     Active Substance: DIPHENHYDRAMINE
     Dosage: 50 MG TWICE DAILY FOR 9 DAYS
     Route: 065

REACTIONS (8)
  - Clonus [Unknown]
  - Hyperreflexia [Unknown]
  - Agitation [Unknown]
  - Tremor [Unknown]
  - Salivary hypersecretion [Unknown]
  - Disorientation [Unknown]
  - Thinking abnormal [Unknown]
  - Nystagmus [Unknown]
